FAERS Safety Report 8523646-8 (Version None)
Quarter: 2012Q3

REPORT INFORMATION
  Report Type: 
  Country: None (occurrence: None)
  Receive Date: 20120720
  Receipt Date: 20120712
  Transmission Date: 20120928
  Serious: Yes (Other)
  Sender: FDA-Public Use
  Company Number: IL-ABBOTT-12P-082-0956330-00

PATIENT
  Sex: Female

DRUGS (4)
  1. IMURAN [Concomitant]
     Indication: CROHN'S DISEASE
  2. HUMIRA [Suspect]
     Route: 058
     Dates: end: 20120503
  3. HUMIRA [Suspect]
     Indication: CROHN'S DISEASE
     Route: 058
     Dates: start: 20120405
  4. HUMIRA [Suspect]
     Route: 058

REACTIONS (6)
  - LOSS OF CONSCIOUSNESS [None]
  - VULVOVAGINAL MYCOTIC INFECTION [None]
  - HEADACHE [None]
  - ASTHENIA [None]
  - DIARRHOEA [None]
  - VOMITING [None]
